FAERS Safety Report 10370082 (Version 8)
Quarter: 2014Q4

REPORT INFORMATION
  Report Type: Spontaneous
  Country: GB (occurrence: GB)
  Receive Date: 20140808
  Receipt Date: 20141219
  Transmission Date: 20150528
  Serious: Yes (Hospitalization)
  Sender: FDA-Public Use
  Company Number: GB-DRREDDYS-GER/UKI/14/0042224

PATIENT
  Age: 78 Year
  Sex: Male
  Weight: 65.31 kg

DRUGS (9)
  1. SERTRALINE [Suspect]
     Active Substance: SERTRALINE HYDROCHLORIDE
     Indication: PRODUCT USED FOR UNKNOWN INDICATION
     Dates: end: 20140123
  2. CALCIPARINE [Interacting]
     Active Substance: HEPARIN CALCIUM
     Indication: ATRIAL FIBRILLATION
     Route: 041
     Dates: start: 20140123, end: 20140128
  3. SINTROM [Interacting]
     Active Substance: ACENOCOUMAROL
     Indication: ATRIAL FIBRILLATION
     Dates: end: 20140120
  4. CRESTOR [Suspect]
     Active Substance: ROSUVASTATIN CALCIUM
     Indication: PRODUCT USED FOR UNKNOWN INDICATION
  5. CO-DIOVAN [Interacting]
     Active Substance: HYDROCHLOROTHIAZIDE\VALSARTAN
     Indication: HYPERTENSION
     Route: 048
  6. SINTROM [Interacting]
     Active Substance: ACENOCOUMAROL
     Dates: start: 20140125, end: 20140130
  7. CLEXANE [Interacting]
     Active Substance: ENOXAPARIN SODIUM
     Indication: ATRIAL FIBRILLATION
     Route: 058
     Dates: start: 20140128, end: 20140130
  8. IBUPROFEN. [Interacting]
     Active Substance: IBUPROFEN
     Indication: PAIN
     Route: 048
     Dates: start: 20140123, end: 20140130
  9. ASPIRIN. [Interacting]
     Active Substance: ASPIRIN
     Indication: CORONARY ARTERY DISEASE
     Route: 048

REACTIONS (7)
  - Haematoma [None]
  - Drug interaction [Recovered/Resolved]
  - Haemorrhage [Recovered/Resolved]
  - Acute kidney injury [Recovered/Resolved]
  - Cerebrovascular accident [Recovered/Resolved]
  - Blood pressure decreased [None]
  - Haemoglobin decreased [None]

NARRATIVE: CASE EVENT DATE: 201401
